FAERS Safety Report 8723534 (Version 2)
Quarter: 2013Q4

REPORT INFORMATION
  Report Type: Spontaneous
  Country: US (occurrence: US)
  Receive Date: 20120814
  Receipt Date: 20131101
  Transmission Date: 20140711
  Serious: No
  Sender: FDA-Public Use
  Company Number: US-009507513-1207USA010716

PATIENT
  Age: 58 Year
  Sex: Female

DRUGS (1)
  1. CLARITIN [Suspect]
     Indication: RASH PRURITIC
     Dosage: UNK

REACTIONS (1)
  - Drug ineffective [Unknown]
